FAERS Safety Report 5871211-3 (Version None)
Quarter: 2008Q3

REPORT INFORMATION
  Report Type: 
  Country: None (occurrence: None)
  Receive Date: 20080829
  Receipt Date: 20071024
  Transmission Date: 20090109
  Serious: Yes (Hospitalization)
  Sender: FDA-Public Use
  Company Number: 2007-01038FE

PATIENT
  Age: 54 Year
  Sex: Male

DRUGS (2)
  1. GONADOTROPIN RELEASING HORMONE (GNRH) [Suspect]
     Indication: DIAGNOSTIC PROCEDURE
     Dosage: 100 MCG ONCE IV
     Route: 042
  2. THYROTROPHIN-RELEASING HORMONE () (THYROTROPHIN-RELEASING HORMONE) [Suspect]
     Indication: DIAGNOSTIC PROCEDURE
     Dosage: 500 MCG ONCE IV
     Route: 042

REACTIONS (5)
  - BURNING SENSATION [None]
  - CHEST DISCOMFORT [None]
  - HEADACHE [None]
  - PITUITARY HAEMORRHAGE [None]
  - VISION BLURRED [None]
